FAERS Safety Report 6215153-2 (Version None)
Quarter: 2009Q2

REPORT INFORMATION
  Report Type: 
  Country: None (occurrence: None)
  Receive Date: 20090601
  Receipt Date: 20081031
  Transmission Date: 20091009
  Serious: Yes (Other)
  Sender: FDA-Public Use
  Company Number: 280966

PATIENT
  Age: 59 Year
  Sex: Female
  Weight: 69.4 kg

DRUGS (5)
  1. ACTIVELLA [Suspect]
     Indication: HOT FLUSH
     Dates: start: 20010701, end: 20020601
  2. PREMPRO [Suspect]
     Indication: HOT FLUSH
     Dosage: 5 MG
     Dates: start: 19980801, end: 20000901
  3. PREMARIN [Suspect]
     Indication: MENORRHAGIA
     Dosage: 0.625 MG
  4. ORTHO-PREFEST(ESTRADIOL, NORGESTIMATE) [Suspect]
     Indication: HOT FLUSH
     Dates: start: 20000901, end: 20010701
  5. ACTOS /01460201/(PIOGLITAZONE) [Concomitant]

REACTIONS (1)
  - BREAST CANCER [None]
